FAERS Safety Report 13923115 (Version 1)
Quarter: 2017Q3

REPORT INFORMATION
  Report Type: Spontaneous
  Country: US (occurrence: US)
  Receive Date: 20170831
  Receipt Date: 20170831
  Transmission Date: 20171127
  Serious: Yes (Other)
  Sender: FDA-Public Use
  Company Number: US-ALVOGEN-2017-ALVOGEN-093225

PATIENT
  Age: 66 Year
  Sex: Female
  Weight: 81.65 kg

DRUGS (5)
  1. TOPROL XL [Suspect]
     Active Substance: METOPROLOL SUCCINATE
     Indication: PRODUCT USED FOR UNKNOWN INDICATION
  2. OMEPRAZOLE. [Suspect]
     Active Substance: OMEPRAZOLE
     Indication: PRODUCT USED FOR UNKNOWN INDICATION
  3. BRILINTA [Suspect]
     Active Substance: TICAGRELOR
     Indication: PRODUCT USED FOR UNKNOWN INDICATION
  4. NEXIUM [Suspect]
     Active Substance: ESOMEPRAZOLE MAGNESIUM
     Indication: GASTROOESOPHAGEAL REFLUX DISEASE
     Dosage: 40 MG EVERY MORNING
     Route: 048
     Dates: start: 2005
  5. LISINOPRIL. [Suspect]
     Active Substance: LISINOPRIL
     Indication: PRODUCT USED FOR UNKNOWN INDICATION

REACTIONS (6)
  - Carpal tunnel syndrome [Recovering/Resolving]
  - Precancerous mucosal lesion [Unknown]
  - Drug dose omission [Unknown]
  - Gastrointestinal sounds abnormal [Unknown]
  - Gastrooesophageal reflux disease [Unknown]
  - Cardiac murmur [Unknown]

NARRATIVE: CASE EVENT DATE: 201503
